APPROVED DRUG PRODUCT: SORINE
Active Ingredient: SOTALOL HYDROCHLORIDE
Strength: 160MG
Dosage Form/Route: TABLET;ORAL
Application: A075500 | Product #002 | TE Code: AB
Applicant: AIPING PHARMACEUTICAL INC
Approved: Apr 27, 2001 | RLD: No | RS: No | Type: RX